FAERS Safety Report 4927192-X (Version None)
Quarter: 2006Q1

REPORT INFORMATION
  Report Type: 
  Country: None (occurrence: None)
  Receive Date: 20060228
  Receipt Date: 20050104
  Transmission Date: 20060701
  Serious: No
  Sender: FDA-Public Use
  Company Number: A0539508A

PATIENT
  Age: 46 Year
  Sex: Male

DRUGS (2)
  1. IMITREX [Suspect]
     Indication: DRUG USE FOR UNKNOWN INDICATION
     Route: 065
  2. REBIF [Concomitant]
     Route: 065

REACTIONS (1)
  - NAUSEA [None]
